FAERS Safety Report 21216505 (Version 1)
Quarter: 2022Q3

REPORT INFORMATION
  Report Type: Spontaneous
  Country: US (occurrence: US)
  Receive Date: 20220816
  Receipt Date: 20220816
  Transmission Date: 20221027
  Serious: No
  Sender: FDA-Public Use
  Company Number: US-PFIZER INC-202201057072

PATIENT
  Sex: Female

DRUGS (2)
  1. PAXLOVID [Suspect]
     Active Substance: NIRMATRELVIR\RITONAVIR
     Indication: COVID-19 treatment
     Dosage: 2 DF, 2X/DAY (STARTED TAKING 2 WHITE TABLETS IN THE MORNING AND 2 PINK TABLETS IN THE EVENING.)
  2. PAXLOVID [Suspect]
     Active Substance: NIRMATRELVIR\RITONAVIR
     Dosage: 1 DF, 2X/DAY (SHE HAS BEEN TAKING 1 IN THE MORNING AND 1 IN THE EVENING)

REACTIONS (3)
  - Incorrect dose administered [Unknown]
  - Product confusion [Unknown]
  - Product label confusion [Unknown]
